FAERS Safety Report 16252345 (Version 1)
Quarter: 2019Q2

REPORT INFORMATION
  Report Type: Report from Study
  Country: US (occurrence: US)
  Receive Date: 20190429
  Receipt Date: 20190429
  Transmission Date: 20190711
  Serious: Yes (Other)
  Sender: FDA-Public Use
  Company Number: US-GILEAD-2019-0404720

PATIENT
  Age: 15 Year
  Sex: Female

DRUGS (3)
  1. SODIUM CHLORIDE. [Concomitant]
     Active Substance: SODIUM CHLORIDE
  2. AZTREONAM LYSINE [Suspect]
     Active Substance: AZTREONAM LYSINE
     Indication: CYSTIC FIBROSIS
     Dosage: 75 MG, TID, 28 DAYS ON AND 28 DAYS OFF. REPEAT
     Route: 055
     Dates: start: 20160211
  3. PULMOZYME [Concomitant]
     Active Substance: DORNASE ALFA

REACTIONS (1)
  - Cystic fibrosis [Not Recovered/Not Resolved]

NARRATIVE: CASE EVENT DATE: 201904
